FAERS Safety Report 7745395-6 (Version None)
Quarter: 2011Q3

REPORT INFORMATION
  Report Type: 
  Country: None (occurrence: None)
  Receive Date: 20110826
  Receipt Date: 20110823
  Transmission Date: 20111222
  Serious: No
  Sender: FDA-Public Use
  Company Number: 2011SP035304

PATIENT
  Age: 80 Year
  Sex: Male
  Weight: 90 kg

DRUGS (7)
  1. MIRTAZAPINE [Suspect]
     Indication: DEPRESSION
     Dosage: ;QD;
  2. CLONID-OPHTAL [Concomitant]
  3. RAMIPRIL [Concomitant]
  4. MIRTAZAPINE [Suspect]
     Indication: DEPRESSION
     Dosage: ;QD;
  5. XALATAN [Concomitant]
  6. AZOPT [Concomitant]
  7. MIRTAZAPINE [Suspect]
     Indication: DEPRESSION
     Dosage: ;QD;

REACTIONS (1)
  - JOINT STIFFNESS [None]
